FAERS Safety Report 7417859-6 (Version None)
Quarter: 2011Q2

REPORT INFORMATION
  Report Type: 
  Country: None (occurrence: None)
  Receive Date: 20110412
  Receipt Date: 20110412
  Transmission Date: 20111010
  Serious: Yes (Hospitalization)
  Sender: FDA-Public Use
  Company Number: None

PATIENT
  Age: 42 Year
  Sex: Female
  Weight: 88.9 kg

DRUGS (18)
  1. CALCIUM PLUS VIT D [Concomitant]
  2. DICLOFENAC [Concomitant]
  3. FOLIC ACID [Concomitant]
  4. VITAMIN A [Concomitant]
  5. MOMETASONE [Concomitant]
  6. MOMETASONE/FORMOTEROL [Concomitant]
  7. MONTELUKAST [Concomitant]
  8. AVELOX [Suspect]
     Dosage: 400 MG QDAILY ORALLY
     Route: 048
     Dates: start: 20110320, end: 20110329
  9. ZINC [Concomitant]
  10. THEOPHYLLINE [Suspect]
     Dosage: 200 MG Q12H ORALLY
     Route: 048
     Dates: start: 20110320, end: 20110330
  11. ACETYLCYSTEINE [Concomitant]
  12. FLUTICASONE PROPIONATE [Concomitant]
  13. PANTOPRAZOLE [Concomitant]
  14. METOCLOPRAMIDE [Concomitant]
  15. TIOTROPIUM [Concomitant]
  16. MULTI-VITAMIN [Concomitant]
  17. SERTRALINE [Concomitant]
  18. BIOTIN [Concomitant]

REACTIONS (5)
  - AFFECTIVE DISORDER [None]
  - DEPRESSION [None]
  - NIGHT SWEATS [None]
  - TREMOR [None]
  - SUICIDAL IDEATION [None]
